FAERS Safety Report 5806595-5 (Version None)
Quarter: 2008Q3

REPORT INFORMATION
  Report Type: 
  Country: None (occurrence: None)
  Receive Date: 20080710
  Receipt Date: 20080627
  Transmission Date: 20090109
  Serious: Yes (Other)
  Sender: FDA-Public Use
  Company Number: PHEH2008US05806

PATIENT
  Sex: Male

DRUGS (1)
  1. FEMARA [Suspect]
     Dosage: UNK
     Dates: start: 20080315

REACTIONS (8)
  - BONE PAIN [None]
  - HAEMORRHAGE [None]
  - HEADACHE [None]
  - MALAISE [None]
  - METASTASIS [None]
  - NAUSEA [None]
  - RADIOTHERAPY [None]
  - VOMITING [None]
